FAERS Safety Report 7700356-8 (Version None)
Quarter: 2011Q3

REPORT INFORMATION
  Report Type: 
  Country: None (occurrence: None)
  Receive Date: 20110822
  Receipt Date: 20110818
  Transmission Date: 20111222
  Serious: Yes (Hospitalization, Disabling, Other)
  Sender: FDA-Public Use
  Company Number: PHHO2010IT06465

PATIENT
  Sex: Male
  Weight: 76 kg

DRUGS (12)
  1. WARFARIN SODIUM [Concomitant]
     Indication: COAGULOPATHY
     Dosage: UNK
  2. BISOPROLOL FUMARATE [Concomitant]
     Indication: CARDIAC FAILURE CONGESTIVE
     Dosage: 2.5 MG, UNK
  3. BLINDED ALISKIREN [Suspect]
     Indication: CARDIAC FAILURE
     Dosage: CODE NOT BROKEN
     Route: 048
     Dates: start: 20100401, end: 20100428
  4. AMIODARONE HCL [Concomitant]
     Indication: ARRHYTHMIA
     Dosage: 200 MG, UNK
  5. ALISKIREN [Suspect]
     Indication: CARDIAC FAILURE
     Dosage: UNK
     Route: 048
     Dates: start: 20100318, end: 20100401
  6. ISOSORBIDE MONONITRATE [Concomitant]
  7. SPIRONOLACTONE [Concomitant]
     Indication: CARDIAC FAILURE CONGESTIVE
     Dosage: UNK
  8. ENALAPRIL MALEATE [Suspect]
     Indication: CARDIAC FAILURE
     Dosage: CODE NOT BROKEN
     Route: 048
     Dates: start: 20100401, end: 20100428
  9. BLINDED NO TREATMENT RECEIVED [Suspect]
     Indication: CARDIAC FAILURE
     Dosage: CODE NOT BROKEN
     Route: 048
     Dates: start: 20100401, end: 20100428
  10. SIMAVASTATIN [Concomitant]
     Indication: DYSLIPIDAEMIA
     Dosage: 5 MG, UNK
  11. ENALAPRIL MALEATE [Suspect]
     Indication: CARDIAC FAILURE
     Dosage: UNK
     Route: 048
     Dates: start: 20100303, end: 20100401
  12. ASPIRIN [Concomitant]
     Indication: CORONARY ARTERY DISEASE
     Dosage: 100 MG, UNK

REACTIONS (6)
  - LOW CARDIAC OUTPUT SYNDROME [None]
  - RENAL IMPAIRMENT [None]
  - CARDIAC FAILURE [None]
  - HYPOTENSION [None]
  - DISEASE PROGRESSION [None]
  - LIVER ABSCESS [None]
